FAERS Safety Report 6043101-7 (Version None)
Quarter: 2009Q1

REPORT INFORMATION
  Report Type: 
  Country: None (occurrence: None)
  Receive Date: 20090119
  Receipt Date: 20090113
  Transmission Date: 20090719
  Serious: Yes (Hospitalization)
  Sender: FDA-Public Use
  Company Number: US-ABBOTT-09P-163-0497478-00

PATIENT
  Age: 52 Year
  Sex: Female
  Weight: 74.91 kg

DRUGS (2)
  1. HUMIRA [Suspect]
     Indication: RHEUMATOID ARTHRITIS
     Dosage: DOSE WAS HELD FOR HOSPITALIZATION
     Route: 058
     Dates: start: 20050101, end: 20080901
  2. HUMIRA [Suspect]
     Route: 058

REACTIONS (5)
  - BIPOLAR DISORDER [None]
  - CONFUSIONAL STATE [None]
  - COUGH [None]
  - RHEUMATOID NODULE [None]
  - UPPER RESPIRATORY TRACT INFECTION [None]
